FAERS Safety Report 5325753-X (Version None)
Quarter: 2007Q2

REPORT INFORMATION
  Report Type: 
  Country: None (occurrence: None)
  Receive Date: 20070509
  Receipt Date: 20070425
  Transmission Date: 20071010
  Serious: Yes (Other)
  Sender: FDA-Public Use
  Company Number: 2007US-05491

PATIENT
  Age: 22 Year
  Sex: Female

DRUGS (2)
  1. ISOTRETINOIN [Suspect]
     Dosage: 40 MG, BID, ORAL
     Route: 048
     Dates: start: 20061103, end: 20070111
  2. ISOTRETINOIN [Suspect]
     Dosage: 40 MG, BID, ORAL
     Route: 048
     Dates: start: 20061204, end: 20070111

REACTIONS (5)
  - ABDOMINAL PAIN UPPER [None]
  - ABORTION INDUCED [None]
  - DRUG EXPOSURE DURING PREGNANCY [None]
  - TERATOGENICITY [None]
  - UNINTENDED PREGNANCY [None]
